FAERS Safety Report 12105861 (Version 1)
Quarter: 2016Q1

REPORT INFORMATION
  Report Type: Spontaneous
  Country: US (occurrence: US)
  Receive Date: 20160223
  Receipt Date: 20160223
  Transmission Date: 20160526
  Serious: No
  Sender: FDA-Public Use
  Company Number: US-AMNEAL PHARMACEUTICALS-2016AMN00072

PATIENT
  Age: 71 Year
  Sex: Female
  Weight: 71.66 kg

DRUGS (4)
  1. CETIRIZINE [Suspect]
     Active Substance: CETIRIZINE HYDROCHLORIDE
     Indication: RHINORRHOEA
     Dosage: 1 TABLETS, 1X/DAY
     Route: 048
     Dates: start: 20150317, end: 20150317
  2. CETIRIZINE [Suspect]
     Active Substance: CETIRIZINE HYDROCHLORIDE
     Dosage: 1 TABLETS, 1X/DAY
     Route: 048
     Dates: start: 20150317, end: 20150317
  3. CETIRIZINE [Suspect]
     Active Substance: CETIRIZINE HYDROCHLORIDE
     Dosage: 1 TABLETS, 1X/DAY
     Route: 048
     Dates: start: 20150317, end: 20150317
  4. CETIRIZINE [Suspect]
     Active Substance: CETIRIZINE HYDROCHLORIDE
     Dosage: 1 TABLETS, 1X/DAY
     Route: 048
     Dates: start: 20150317, end: 20150317

REACTIONS (1)
  - Drug ineffective [Recovered/Resolved]

NARRATIVE: CASE EVENT DATE: 20150317
